FAERS Safety Report 5201178-2 (Version None)
Quarter: 2007Q1

REPORT INFORMATION
  Report Type: 
  Country: None (occurrence: None)
  Receive Date: 20070108
  Receipt Date: 20061227
  Transmission Date: 20070707
  Serious: Yes (Disabling)
  Sender: FDA-Public Use
  Company Number: 2006GB02393

PATIENT
  Age: 66 Year
  Sex: Male
  Weight: 90 kg

DRUGS (1)
  1. OMEPRAZOLE [Suspect]
     Indication: OESOPHAGITIS
     Route: 048
     Dates: start: 20060601, end: 20061101

REACTIONS (3)
  - BLOOD CREATINE INCREASED [None]
  - RENAL IMPAIRMENT [None]
  - TUBULOINTERSTITIAL NEPHRITIS [None]
